FAERS Safety Report 18434711 (Version 1)
Quarter: 2020Q4

REPORT INFORMATION
  Report Type: Spontaneous
  Country: US (occurrence: US)
  Receive Date: 20201027
  Receipt Date: 20201027
  Transmission Date: 20210114
  Serious: Yes (Death)
  Sender: FDA-Public Use
  Company Number: None

PATIENT
  Sex: Female

DRUGS (3)
  1. SODIUM PHEY PWD 250GM [Suspect]
     Active Substance: SODIUM PHENYLBUTYRATE
     Indication: SPINAL MUSCULAR ATROPHY
     Dosage: ?          OTHER ROUTE:VIA G-TUBE?
     Dates: start: 20171026
  2. K CITRATE SOL CITR ACD-LEVOCARNTIN SOL [Concomitant]
  3. ALBUTEROL SYP [Concomitant]

REACTIONS (1)
  - Death [None]
